FAERS Safety Report 8179485-3 (Version None)
Quarter: 2012Q1

REPORT INFORMATION
  Report Type: 
  Country: None (occurrence: None)
  Receive Date: 20120302
  Receipt Date: 20120227
  Transmission Date: 20120608
  Serious: Yes (Death, Other)
  Sender: FDA-Public Use
  Company Number: CHPA2012US003795

PATIENT
  Age: 36 Year
  Sex: Male

DRUGS (5)
  1. MORPHINE [Suspect]
     Dosage: UNK, UNK
  2. ETHANOL [Suspect]
     Dosage: UNK, UNK
  3. DIPHENHYDRAMINE HCL [Suspect]
     Dosage: UNK, UNK
  4. ALPRAZOLAM [Suspect]
     Dosage: UNK, UNK
  5. ACETAMINOPHEN AND HYDROCODONE BITARTRATE [Suspect]
     Dosage: UNK, UNK

REACTIONS (2)
  - CARDIO-RESPIRATORY ARREST [None]
  - DRUG ABUSE [None]
